FAERS Safety Report 9730354 (Version 1)
Quarter: 2013Q4

REPORT INFORMATION
  Report Type: Spontaneous
  Country: US (occurrence: US)
  Receive Date: 20131202
  Receipt Date: 20131202
  Transmission Date: 20140711
  Serious: Yes (Other)
  Sender: FDA-Public Use
  Company Number: US-JNJFOC-20131117077

PATIENT
  Age: 27 Year
  Sex: Female

DRUGS (1)
  1. PENTOSAN POLYSULFATE SODIUM [Suspect]
     Indication: CYSTITIS INTERSTITIAL
     Route: 048

REACTIONS (1)
  - Haematochezia [Recovered/Resolved]
